FAERS Safety Report 4862397-8 (Version None)
Quarter: 2005Q4

REPORT INFORMATION
  Report Type: 
  Country: None (occurrence: None)
  Receive Date: 20051128
  Receipt Date: 20050727
  Transmission Date: 20060501
  Serious: No
  Sender: FDA-Public Use
  Company Number: 216437

PATIENT
  Age: 42 Year
  Sex: Male
  Weight: 83 kg

DRUGS (5)
  1. RAPTIVA [Suspect]
     Indication: PSORIASIS
     Dosage: 1 ML, 1/WEEK, SUBCUTANEOUS
     Route: 058
  2. SINUS MEDICATION NOS (SINUS MEDICATION NOS) [Concomitant]
  3. XANAX [Concomitant]
  4. PREVACID [Concomitant]
  5. DARVOCET (ACETAMINOPHEN, PROPOXYPHENE NAPSYLATE) [Concomitant]

REACTIONS (3)
  - ASTHENIA [None]
  - DYSPEPSIA [None]
  - MYALGIA [None]
